FAERS Safety Report 8264437-5 (Version None)
Quarter: 2012Q2

REPORT INFORMATION
  Report Type: 
  Country: None (occurrence: None)
  Receive Date: 20120406
  Receipt Date: 20120403
  Transmission Date: 20120825
  Serious: No
  Sender: FDA-Public Use
  Company Number: US-PFIZER INC-2012018988

PATIENT
  Sex: Female

DRUGS (2)
  1. CHANTIX [Suspect]
     Dosage: 1 MG, 2X/DAY
     Route: 048
     Dates: start: 20120127
  2. CHANTIX [Suspect]
     Indication: TOBACCO USER
     Dosage: STARTER PACK
     Route: 048
     Dates: start: 20120119, end: 20120126

REACTIONS (1)
  - MEMORY IMPAIRMENT [None]
